FAERS Safety Report 15414964 (Version 5)
Quarter: 2019Q1

REPORT INFORMATION
  Report Type: Report from Study
  Country: CO (occurrence: CO)
  Receive Date: 20180921
  Receipt Date: 20190314
  Transmission Date: 20190417
  Serious: Yes (Hospitalization, Other)
  Sender: FDA-Public Use
  Company Number: CO-BAYER-2018-172854

PATIENT
  Age: 66 Year
  Sex: Male

DRUGS (9)
  1. METFORMIN [Concomitant]
     Active Substance: METFORMIN HYDROCHLORIDE
     Indication: DIABETES MELLITUS
     Dosage: 850 MG  2 PER DAY
  2. LOSARTAN. [Concomitant]
     Active Substance: LOSARTAN
     Indication: HYPERTENSION
     Dosage: 50 MG PER DAY
  3. OMEPRAZOLE. [Concomitant]
     Active Substance: OMEPRAZOLE
     Dosage: UNK
  4. AMLODIPINE [Concomitant]
     Active Substance: AMLODIPINE BESYLATE
     Dosage: UNK
  5. SUGASTRIN [Concomitant]
     Dosage: UNK
  6. INSULIN GLULISINE [Concomitant]
     Active Substance: INSULIN GLULISINE
     Dosage: UNK
  7. NEXAVAR [Suspect]
     Active Substance: SORAFENIB
     Indication: HEPATOCELLULAR CARCINOMA
     Dosage: 400 MG, BID (2 TABLETS IN THE MORNING AND 2 TABLETS AT NIGHT)
     Dates: start: 20180512
  8. INSULIN GLARGINE [Concomitant]
     Active Substance: INSULIN GLARGINE
     Dosage: 18 UI
  9. APIDRA [Concomitant]
     Active Substance: INSULIN GLULISINE
     Dosage: 5 UI

REACTIONS (16)
  - Biliary drainage [Unknown]
  - Dry skin [Not Recovered/Not Resolved]
  - Spinal pain [Not Recovered/Not Resolved]
  - Alopecia [None]
  - Hepatic embolisation [Unknown]
  - Pain [None]
  - Blood iron decreased [Unknown]
  - Renal failure [Unknown]
  - Jaundice [Unknown]
  - Dry skin [Unknown]
  - Constipation [Unknown]
  - Acne pustular [Not Recovered/Not Resolved]
  - Haemoglobin decreased [Unknown]
  - Bile duct stent insertion [Unknown]
  - Pain [Not Recovered/Not Resolved]
  - Skin exfoliation [Not Recovered/Not Resolved]

NARRATIVE: CASE EVENT DATE: 201807
